FAERS Safety Report 9001010 (Version 1)
Quarter: 2013Q1

REPORT INFORMATION
  Report Type: Spontaneous
  Country: US (occurrence: None)
  Receive Date: 20130103
  Receipt Date: 20130103
  Transmission Date: 20140127
  Serious: Yes (Hospitalization)
  Sender: FDA-Public Use
  Company Number: None

PATIENT
  Age: 54 Year
  Sex: Male

DRUGS (2)
  1. INSULIN GLARGINE [Suspect]
     Indication: DIABETES MELLITUS
     Dosage: 28 UNITS
     Route: 058
     Dates: start: 20120507, end: 20120817
  2. INSULIN ASPART [Suspect]
     Indication: DIABETES MELLITUS
     Dosage: 3-5 UNITS TIDAC
     Route: 058
     Dates: start: 20120507, end: 20120817

REACTIONS (3)
  - Hypoglycaemic coma [None]
  - Mental status changes [None]
  - Blood glucose increased [None]
